FAERS Safety Report 22596407 (Version 5)
Quarter: 2023Q4

REPORT INFORMATION
  Report Type: Spontaneous
  Country: CA (occurrence: CA)
  Receive Date: 20230613
  Receipt Date: 20231222
  Transmission Date: 20240110
  Serious: Yes (Other)
  Sender: FDA-Public Use
  Company Number: CA-PFIZER INC-202300216823

PATIENT
  Age: 58 Year
  Sex: Female

DRUGS (4)
  1. METHOTREXATE SODIUM [Suspect]
     Active Substance: METHOTREXATE SODIUM
     Indication: Rheumatoid arthritis
     Dosage: 20 MG, WEEKLY
     Route: 048
     Dates: start: 2019
  2. HYDROXYCHLOROQUINE [Concomitant]
     Active Substance: HYDROXYCHLOROQUINE
     Dosage: 200 MG, 1X/DAY
     Route: 048
  3. PREDNISONE [Concomitant]
     Active Substance: PREDNISONE
     Dosage: 10 MG, 1X/DAY
     Route: 048
     Dates: start: 2001
  4. RINVOQ [Concomitant]
     Active Substance: UPADACITINIB
     Dosage: 15 MG, 1X/DAY
     Route: 065
     Dates: start: 202303

REACTIONS (3)
  - Cataract [Unknown]
  - Neoplasm malignant [Unknown]
  - Treatment failure [Unknown]

NARRATIVE: CASE EVENT DATE: 20230101
